FAERS Safety Report 4361483-9 (Version None)
Quarter: 2004Q2

REPORT INFORMATION
  Report Type: 
  Country: None (occurrence: None)
  Receive Date: 20040521
  Receipt Date: 20030829
  Transmission Date: 20050107
  Serious: No
  Sender: FDA-Public Use
  Company Number: US-GLAXOSMITHKLINE-A0424102A

PATIENT
  Age: 26 Year
  Sex: Female

DRUGS (2)
  1. ZYBAN [Suspect]
     Dosage: 150MG TWICE PER DAY
     Route: 048
     Dates: start: 20030822, end: 20030828
  2. ORTHO EVRA [Concomitant]

REACTIONS (3)
  - FEELING JITTERY [None]
  - MOOD SWINGS [None]
  - NAUSEA [None]
